FAERS Safety Report 10532758 (Version 1)
Quarter: 2014Q4

REPORT INFORMATION
  Report Type: Spontaneous
  Country: ZA (occurrence: ZA)
  Receive Date: 20141021
  Receipt Date: 20141021
  Transmission Date: 20150529
  Serious: Yes (Death, Hospitalization)
  Sender: FDA-Public Use
  Company Number: ZA-AUROBINDO-AUR-APL-2014-10921

PATIENT
  Age: 28 Year
  Sex: Male

DRUGS (4)
  1. NEVIRAPINE 200MG [Suspect]
     Active Substance: NEVIRAPINE
     Dosage: DOUBLED TO 200 MG TWICE DAILY
     Route: 065
  2. LAMIVUDINE. [Concomitant]
     Active Substance: LAMIVUDINE
     Indication: ANTIRETROVIRAL THERAPY
     Dosage: 150 MG, TWO TIMES A DAY
     Route: 065
  3. NEVIRAPINE 200MG [Suspect]
     Active Substance: NEVIRAPINE
     Indication: ANTIRETROVIRAL THERAPY
     Dosage: 200 MG, DAILY
     Route: 065
  4. ZIDOVUDINE. [Concomitant]
     Active Substance: ZIDOVUDINE
     Indication: ANTIRETROVIRAL THERAPY
     Dosage: 300 MG, TWO TIMES A DAY
     Route: 065

REACTIONS (6)
  - Infection [Fatal]
  - Stevens-Johnson syndrome [Fatal]
  - Toxic epidermal necrolysis [Fatal]
  - Renal failure [Fatal]
  - Condition aggravated [Unknown]
  - Rash [Recovered/Resolved]
